FAERS Safety Report 16818916 (Version 1)
Quarter: 2019Q3

REPORT INFORMATION
  Report Type: Spontaneous
  Country: US (occurrence: US)
  Receive Date: 20190917
  Receipt Date: 20190917
  Transmission Date: 20191005
  Serious: Yes (Life-Threatening, Hospitalization)
  Sender: FDA-Public Use
  Company Number: US-TEVA-2019-US-1108518

PATIENT
  Age: 20 Month
  Sex: Female

DRUGS (1)
  1. CARBAMAZEPINE. [Suspect]
     Active Substance: CARBAMAZEPINE
     Indication: ACCIDENTAL EXPOSURE TO PRODUCT BY CHILD
     Route: 048

REACTIONS (7)
  - Partial seizures [Recovered/Resolved]
  - Hypokalaemia [Unknown]
  - Mental status changes [Recovered/Resolved]
  - Pyrexia [Recovered/Resolved]
  - Accidental exposure to product by child [Recovering/Resolving]
  - Generalised tonic-clonic seizure [Recovered/Resolved]
  - Metabolic acidosis [Unknown]
